FAERS Safety Report 7867546-5 (Version None)
Quarter: 2011Q4

REPORT INFORMATION
  Report Type: 
  Country: None (occurrence: None)
  Receive Date: 20111028
  Receipt Date: 20111020
  Transmission Date: 20120403
  Serious: Yes (Other)
  Sender: FDA-Public Use
  Company Number: PHHY2011US95017

PATIENT
  Sex: Male
  Weight: 185 kg

DRUGS (5)
  1. MIRAPEX [Concomitant]
     Dosage: 0.25 UKN, UNK
     Route: 048
  2. GILENYA [Suspect]
     Indication: MULTIPLE SCLEROSIS
     Dosage: 1 DF, QD
     Route: 048
     Dates: end: 20110927
  3. TEGRETOL [Concomitant]
     Dosage: 200 MG, QD
     Route: 048
  4. ZANAFLEX [Concomitant]
     Dosage: 4 MG, TID
     Route: 048
  5. HYDROCHLOROTHIAZIDE [Concomitant]
     Dosage: 25 MG, QD

REACTIONS (6)
  - RETINAL DISORDER [None]
  - VISION BLURRED [None]
  - PHOTOPHOBIA [None]
  - VISUAL ACUITY REDUCED [None]
  - MACULAR DEGENERATION [None]
  - CYSTOID MACULAR OEDEMA [None]
